FAERS Safety Report 4449854-3 (Version None)
Quarter: 2004Q3

REPORT INFORMATION
  Report Type: 
  Country: None (occurrence: None)
  Receive Date: 20040803
  Receipt Date: 20040430
  Transmission Date: 20050211
  Serious: Yes (Hospitalization, Other)
  Sender: FDA-Public Use
  Company Number: 200403000616

PATIENT
  Age: 41 Year
  Sex: Female

DRUGS (1)
  1. MONISTAT 1 COMBINATION PACK [Suspect]
     Indication: FUNGAL INFECTION
     Dosage: 1200 MG, 1, VAGINAL
     Route: 067
     Dates: start: 20040421, end: 20040421

REACTIONS (1)
  - DRUG INTERACTION [None]
